FAERS Safety Report 8380291-5 (Version None)
Quarter: 2012Q2

REPORT INFORMATION
  Report Type: 
  Country: None (occurrence: None)
  Receive Date: 20120523
  Receipt Date: 20120510
  Transmission Date: 20120825
  Serious: No
  Sender: FDA-Public Use
  Company Number: US-ASTRAZENECA-2012SE30273

PATIENT
  Age: 90 Year
  Sex: Female
  Weight: 81.6 kg

DRUGS (3)
  1. BENICAR [Suspect]
     Dates: start: 20120501
  2. NEXIUM [Suspect]
     Indication: OESOPHAGEAL DISORDER
     Route: 048
     Dates: start: 20120501, end: 20120509
  3. NEXIUM [Suspect]
     Route: 048
     Dates: start: 20120510

REACTIONS (4)
  - ABDOMINAL DISCOMFORT [None]
  - OFF LABEL USE [None]
  - ABDOMINAL PAIN UPPER [None]
  - FLATULENCE [None]
